FAERS Safety Report 11523593 (Version 1)
Quarter: 2015Q3

REPORT INFORMATION
  Report Type: Spontaneous
  Country: US (occurrence: US)
  Receive Date: 20150918
  Receipt Date: 20150918
  Transmission Date: 20151125
  Serious: No
  Sender: FDA-Public Use
  Company Number: US-ROCHE-758644

PATIENT
  Age: 49 Year
  Sex: Male

DRUGS (2)
  1. PEGASYS [Suspect]
     Active Substance: PEGINTERFERON ALFA-2A
     Indication: PRODUCT USED FOR UNKNOWN INDICATION
     Dosage: PFS WEEKLY
     Route: 065
  2. RIBAVIRIN. [Suspect]
     Active Substance: RIBAVIRIN
     Indication: PRODUCT USED FOR UNKNOWN INDICATION
     Dosage: DOSE: 600 MG IN AM AND 400 MG IN PM
     Route: 065

REACTIONS (5)
  - Oropharyngeal pain [Unknown]
  - Headache [Unknown]
  - Pain [Unknown]
  - Malaise [Unknown]
  - Pyrexia [Unknown]

NARRATIVE: CASE EVENT DATE: 20101214
